FAERS Safety Report 17459685 (Version 1)
Quarter: 2020Q1

REPORT INFORMATION
  Report Type: Spontaneous
  Country: CA (occurrence: CA)
  Receive Date: 20200226
  Receipt Date: 20200226
  Transmission Date: 20200409
  Serious: Yes (Hospitalization)
  Sender: FDA-Public Use
  Company Number: CA-TEVA-2020-CA-1189482

PATIENT
  Age: 73 Year
  Sex: Female

DRUGS (4)
  1. PREDNISONE. [Suspect]
     Active Substance: PREDNISONE
     Indication: COLITIS ULCERATIVE
     Dosage: 50 MILLIGRAM DAILY; ONGOING
     Route: 048
     Dates: start: 202001
  2. STEROIDS [Suspect]
     Active Substance: UNSPECIFIED INGREDIENT
     Indication: COLITIS ULCERATIVE
     Route: 042
     Dates: start: 202001, end: 202001
  3. INFLECTRA (PFIZER) [Concomitant]
     Indication: COLITIS ULCERATIVE
     Dosage: 600MG (10MG/KG)/WEEK 0 AND 1
     Route: 042
     Dates: start: 20200121, end: 20200129
  4. ATORVASTATIN (PFIZER) [Concomitant]

REACTIONS (3)
  - Colitis [Unknown]
  - Frequent bowel movements [Not Recovered/Not Resolved]
  - Drug ineffective [Unknown]
